FAERS Safety Report 6381748-9 (Version None)
Quarter: 2009Q3

REPORT INFORMATION
  Report Type: 
  Country: None (occurrence: None)
  Receive Date: 20090930
  Receipt Date: 20090924
  Transmission Date: 20100115
  Serious: Yes (Life-Threatening)
  Sender: FDA-Public Use
  Company Number: PHEH2009US11722

PATIENT
  Sex: Female

DRUGS (1)
  1. EXJADE [Suspect]
     Dosage: 1500 MG DAILY
     Route: 048
     Dates: start: 20090904

REACTIONS (2)
  - BLOOD POTASSIUM DECREASED [None]
  - INFECTION [None]
